FAERS Safety Report 9681261 (Version 1)
Quarter: 2013Q4

REPORT INFORMATION
  Report Type: Spontaneous
  Country: US (occurrence: None)
  Receive Date: 20131108
  Receipt Date: 20131108
  Transmission Date: 20140711
  Serious: No
  Sender: FDA-Public Use
  Company Number: None

PATIENT
  Age: 49 Year
  Sex: Female
  Weight: 80.29 kg

DRUGS (2)
  1. VENLAFAXINE [Suspect]
     Indication: DEPRESSION
     Dosage: 2 CAPSULES ONCE DAILY TAKEN BY MOUTH
     Route: 048
     Dates: start: 20131010, end: 20131017
  2. VENLAFAXINE [Suspect]
     Indication: DEATH OF RELATIVE
     Dosage: 2 CAPSULES ONCE DAILY TAKEN BY MOUTH
     Route: 048
     Dates: start: 20131010, end: 20131017

REACTIONS (11)
  - Drug withdrawal syndrome [None]
  - Nausea [None]
  - Dizziness [None]
  - Dizziness [None]
  - Hyperhidrosis [None]
  - Hostility [None]
  - Depressed mood [None]
  - Self-injurious ideation [None]
  - Drug dose omission [None]
  - Product quality issue [None]
  - Product quality issue [None]
